FAERS Safety Report 17515210 (Version 2)
Quarter: 2020Q1

REPORT INFORMATION
  Report Type: Spontaneous
  Country: US (occurrence: US)
  Receive Date: 20200309
  Receipt Date: 20200318
  Transmission Date: 20200409
  Serious: Yes (Death, Hospitalization, Other)
  Sender: FDA-Public Use
  Company Number: US-ULTRAGENYX PHARMACEUTICAL INC.-US-UGNX-20-00037

PATIENT
  Sex: Male

DRUGS (2)
  1. MEPSEVII [Suspect]
     Active Substance: VESTRONIDASE ALFA-VJBK
     Dosage: 2 WEEKS AFTER THE FIRST DOSE
  2. MEPSEVII [Suspect]
     Active Substance: VESTRONIDASE ALFA-VJBK
     Indication: PRODUCT USED FOR UNKNOWN INDICATION
     Dates: start: 20191213

REACTIONS (3)
  - Respiratory failure [Fatal]
  - Hypercapnia [Unknown]
  - Bradycardia [Unknown]
